FAERS Safety Report 4621534-0 (Version None)
Quarter: 2005Q1

REPORT INFORMATION
  Report Type: 
  Country: None (occurrence: None)
  Receive Date: 20050328
  Receipt Date: 20031125
  Transmission Date: 20050727
  Serious: No
  Sender: FDA-Public Use
  Company Number: 10105

PATIENT
  Age: 58 Year
  Sex: Female

DRUGS (2)
  1. METHOTREXATE [Suspect]
     Dosage: 22 MG
  2. LEFLUNOMIDE [Suspect]
     Dosage: 20 MG

REACTIONS (1)
  - NEUROPATHY PERIPHERAL [None]
